FAERS Safety Report 23219719 (Version 1)
Quarter: 2023Q4

REPORT INFORMATION
  Report Type: Spontaneous
  Country: US (occurrence: US)
  Receive Date: 20231122
  Receipt Date: 20231122
  Transmission Date: 20240109
  Serious: No
  Sender: FDA-Public Use
  Company Number: US-AVADEL CNS PHARMACEUTICALS, LLC-2023AVA00059

PATIENT
  Age: 27 Year
  Sex: Female

DRUGS (6)
  1. LUMRYZ [Suspect]
     Active Substance: SODIUM OXYBATE
     Indication: Narcolepsy
     Dosage: 4.5 G, 1X/DAY AT NIGHT
     Dates: start: 20230809, end: 20230809
  2. LUMRYZ [Suspect]
     Active Substance: SODIUM OXYBATE
     Dosage: ^LOWER DOSE^ (WEIGHED OUT 4.5 GRAM HERSELF ON HER SCALE), 1X/DAY AT NIGHT
     Dates: start: 20230810, end: 202308
  3. LUMRYZ [Suspect]
     Active Substance: SODIUM OXYBATE
     Indication: Narcolepsy
     Dosage: THE ENTIRE CONTENTS OF EACH PACKET (6 G)
     Dates: start: 202308
  4. VITAMINS NOS [Concomitant]
     Active Substance: VITAMINS
  5. UNSPECIFIED INGREDIENT [Concomitant]
     Active Substance: UNSPECIFIED INGREDIENT
  6. MIRALAX [Concomitant]
     Active Substance: POLYETHYLENE GLYCOL 3350

REACTIONS (2)
  - Nausea [Recovering/Resolving]
  - Intentional product use issue [Recovered/Resolved]

NARRATIVE: CASE EVENT DATE: 20230809
